FAERS Safety Report 24117365 (Version 1)
Quarter: 2024Q3

REPORT INFORMATION
  Report Type: Spontaneous
  Country: CN (occurrence: CN)
  Receive Date: 20240722
  Receipt Date: 20240722
  Transmission Date: 20241017
  Serious: Yes (Life-Threatening)
  Sender: NOVO NORDISK
  Company Number: CN-NOVOPROD-1244695

PATIENT
  Age: 36 Year
  Sex: Female

DRUGS (3)
  1. NOVORAPID [Suspect]
     Active Substance: INSULIN ASPART
     Indication: Type 1 diabetes mellitus
     Dosage: UNK (ADDED EXTRA MEDICATION)
     Dates: start: 20240526
  2. NOVORAPID [Suspect]
     Active Substance: INSULIN ASPART
     Dosage: UNK
     Route: 058
     Dates: end: 20240609
  3. NOVORAPID [Suspect]
     Active Substance: INSULIN ASPART
     Dosage: UNK (INJECTED ABOUT THREE TIMES THE USUAL DOSE OF MEDICATION)
     Dates: start: 20240527

REACTIONS (6)
  - Hypoaesthesia [Recovered/Resolved]
  - Headache [Recovered/Resolved]
  - Dry mouth [Recovered/Resolved]
  - Blood glucose increased [Recovered/Resolved]
  - Suspected product quality issue [Recovered/Resolved]
  - Drug ineffective [Recovered/Resolved]

NARRATIVE: CASE EVENT DATE: 20240526
